FAERS Safety Report 4647065-X (Version None)
Quarter: 2005Q2

REPORT INFORMATION
  Report Type: 
  Country: None (occurrence: None)
  Receive Date: 20050331
  Receipt Date: 20050201
  Transmission Date: 20051028
  Serious: No
  Sender: FDA-Public Use
  Company Number: 05P-163-0288979-00

PATIENT
  Age: 48 Year
  Sex: Female
  Weight: 81.6475 kg

DRUGS (9)
  1. HUMIRA [Suspect]
     Indication: RHEUMATOID ARTHRITIS
     Dosage: 40 MG, 1 IN 1 WK, SUBCUTANEOUS
     Route: 058
     Dates: start: 20040101
  2. CORTISONE [Concomitant]
  3. BUCINDOLOL HYDROCHLORIDE [Concomitant]
  4. LISINOPRIL [Concomitant]
  5. BISET [Concomitant]
  6. ATORVASTATIN CALCIUM [Concomitant]
  7. LORATADINE [Concomitant]
  8. ULTRACET [Concomitant]
  9. MODAFINIL [Concomitant]

REACTIONS (3)
  - JOINT SWELLING [None]
  - PAIN IN EXTREMITY [None]
  - RHEUMATOID NODULE [None]
